FAERS Safety Report 6682918-2 (Version None)
Quarter: 2010Q2

REPORT INFORMATION
  Report Type: 
  Country: None (occurrence: None)
  Receive Date: 20100415
  Receipt Date: 20100409
  Transmission Date: 20101027
  Serious: Yes (Other)
  Sender: FDA-Public Use
  Company Number: B0647253A

PATIENT

DRUGS (2)
  1. TYKERB [Suspect]
     Indication: DRUG USE FOR UNKNOWN INDICATION
     Dosage: 1250MG PER DAY
     Route: 048
  2. TYKERB [Suspect]
     Dosage: 1000MG PER DAY
     Route: 048

REACTIONS (1)
  - BLOOD BILIRUBIN INCREASED [None]
